FAERS Safety Report 7630093-X (Version None)
Quarter: 2011Q3

REPORT INFORMATION
  Report Type: 
  Country: None (occurrence: None)
  Receive Date: 20110722
  Receipt Date: 20110713
  Transmission Date: 20111222
  Serious: Yes (Other)
  Sender: FDA-Public Use
  Company Number: AU-JNJFOC-20110608961

PATIENT
  Age: 23 Year
  Sex: Female

DRUGS (3)
  1. REMICADE [Suspect]
     Indication: COLITIS ULCERATIVE
     Route: 042
     Dates: start: 20110530
  2. REMICADE [Suspect]
     Route: 042
     Dates: start: 20110516
  3. REMICADE [Suspect]
     Route: 042
     Dates: start: 20110617

REACTIONS (3)
  - RECTAL HAEMORRHAGE [None]
  - COLECTOMY [None]
  - DIARRHOEA [None]
